FAERS Safety Report 10007918 (Version 2)
Quarter: 2014Q1

REPORT INFORMATION
  Report Type: Spontaneous
  Country: US (occurrence: US)
  Receive Date: 20140313
  Receipt Date: 20140313
  Transmission Date: 20141002
  Serious: No
  Sender: FDA-Public Use
  Company Number: US-GILEAD-2013-0070686

PATIENT
  Age: 54 Year
  Sex: Female

DRUGS (2)
  1. LETAIRIS [Suspect]
     Indication: PULMONARY ARTERIAL HYPERTENSION
     Dosage: 5 MG, QD
     Route: 048
     Dates: start: 20121214
  2. ADCIRCA [Concomitant]

REACTIONS (4)
  - Hypotension [Not Recovered/Not Resolved]
  - Hypotension [Unknown]
  - Asthenia [Unknown]
  - Local swelling [Unknown]
